FAERS Safety Report 7987407-0 (Version None)
Quarter: 2011Q4

REPORT INFORMATION
  Report Type: 
  Country: None (occurrence: None)
  Receive Date: 20111216
  Receipt Date: 20110406
  Transmission Date: 20120403
  Serious: No
  Sender: FDA-Public Use
  Company Number: US-BRISTOL-MYERS SQUIBB COMPANY-15657281

PATIENT
  Sex: Male

DRUGS (5)
  1. DEPAKOTE [Concomitant]
  2. ABILIFY [Suspect]
     Indication: BIPOLAR DISORDER
     Dosage: STARTED 2 YRS AGO
  3. ABILIFY [Suspect]
     Indication: SCHIZOPHRENIA, PARANOID TYPE
     Dosage: STARTED 2 YRS AGO
  4. ABILIFY [Suspect]
     Indication: SCHIZOPHRENIA
     Dosage: STARTED 2 YRS AGO
  5. HALDOL [Concomitant]

REACTIONS (2)
  - VISION BLURRED [None]
  - EYE MOVEMENT DISORDER [None]
